FAERS Safety Report 5157186-3 (Version None)
Quarter: 2006Q4

REPORT INFORMATION
  Report Type: 
  Country: None (occurrence: None)
  Receive Date: 20061113
  Receipt Date: 20061031
  Transmission Date: 20070319
  Serious: Yes (Other)
  Sender: FDA-Public Use
  Company Number: THYM-11165

PATIENT
  Sex: 0

DRUGS (4)
  1. THYMOGLOBULIN [Suspect]
     Indication: RENAL TRANSPLANT
     Dosage: 1.5 MG/KG IV
     Route: 042
  2. SOLU-MEDROL [Concomitant]
  3. TACROLIMUS [Concomitant]
  4. MYCOPHENOLATE MOFETIL [Concomitant]

REACTIONS (1)
  - COMPLICATIONS OF TRANSPLANT SURGERY [None]
